FAERS Safety Report 18283954 (Version 1)
Quarter: 2020Q3

REPORT INFORMATION
  Report Type: Spontaneous
  Country: US (occurrence: US)
  Receive Date: 20200918
  Receipt Date: 20200918
  Transmission Date: 20201103
  Serious: No
  Sender: FDA-Public Use
  Company Number: US-ALLERGAN-2016942US

PATIENT
  Sex: Female

DRUGS (1)
  1. ZENPEP [Suspect]
     Active Substance: PANCRELIPASE AMYLASE\PANCRELIPASE LIPASE\PANCRELIPASE PROTEASE
     Indication: PANCREATIC FAILURE

REACTIONS (7)
  - Pain in extremity [Recovered/Resolved]
  - Arthralgia [Unknown]
  - Arthritis [Unknown]
  - Diarrhoea [Unknown]
  - Back pain [Unknown]
  - Joint stiffness [Unknown]
  - Bone pain [Unknown]
